FAERS Safety Report 5419597-8 (Version None)
Quarter: 2007Q3

REPORT INFORMATION
  Report Type: 
  Country: None (occurrence: None)
  Receive Date: 20070816
  Receipt Date: 20070816
  Transmission Date: 20080115
  Serious: No
  Sender: FDA-Public Use
  Company Number: None

PATIENT
  Sex: Female

DRUGS (9)
  1. LEVOTHYROXINE SODIUM [Suspect]
     Indication: HYPOTHYROIDISM
     Dosage: 0.112 MG DAILY PO
     Route: 048
     Dates: start: 20061115, end: 20070806
  2. EFFEXOR XR [Concomitant]
  3. CYCLOBENZAPRINE HCL [Concomitant]
  4. ACETAMINOPHEN AND HYDROCODONE BITARTRATE [Concomitant]
  5. IBUPROFEN [Concomitant]
  6. FOSINOPRIL SODIUM [Concomitant]
  7. VERAPAMIL [Concomitant]
  8. HYDROCHLOROTHIAZIDE [Concomitant]
  9. PRAVASTATIN [Concomitant]

REACTIONS (5)
  - ANXIETY [None]
  - FATIGUE [None]
  - HEADACHE [None]
  - INSOMNIA [None]
  - THERAPEUTIC RESPONSE UNEXPECTED [None]
